FAERS Safety Report 19808715 (Version 1)
Quarter: 2021Q3

REPORT INFORMATION
  Report Type: Spontaneous
  Country: US (occurrence: US)
  Receive Date: 20210908
  Receipt Date: 20210908
  Transmission Date: 20211014
  Serious: Yes (Death)
  Sender: FDA-Public Use
  Company Number: None

PATIENT
  Age: 77 Year
  Sex: Female
  Weight: 76 kg

DRUGS (1)
  1. RALOXIFENE. [Suspect]
     Active Substance: RALOXIFENE
     Indication: OSTEOPOROSIS
     Dates: end: 20210621

REACTIONS (7)
  - Hypoxia [None]
  - Haemodynamic instability [None]
  - Cardiac arrest [None]
  - Pulmonary infarction [None]
  - Asthenia [None]
  - Sepsis [None]
  - Pulmonary embolism [None]

NARRATIVE: CASE EVENT DATE: 20210621
